FAERS Safety Report 23713782 (Version 1)
Quarter: 2024Q2

REPORT INFORMATION
  Report Type: Spontaneous
  Country: US (occurrence: US)
  Receive Date: 20240405
  Receipt Date: 20240405
  Transmission Date: 20240716
  Serious: No
  Sender: FDA-Public Use
  Company Number: US-PERRIGO-23US011273

PATIENT
  Age: 71 Year
  Sex: Female
  Weight: 58.503 kg

DRUGS (2)
  1. DEXTROMETHORPHAN HYDROBROMIDE\GUAIFENESIN [Suspect]
     Active Substance: DEXTROMETHORPHAN HYDROBROMIDE\GUAIFENESIN
     Indication: Pulmonary congestion
     Dosage: 1 TABLET, EVERY 12 HOURS
     Route: 048
     Dates: start: 20230920, end: 20230921
  2. VICKS NYQUIL COUGH [Concomitant]
     Active Substance: DEXTROMETHORPHAN HYDROBROMIDE\DOXYLAMINE SUCCINATE
     Indication: Lower respiratory tract infection
     Dosage: UNK
     Route: 065
     Dates: start: 20230919

REACTIONS (2)
  - Choking [Recovered/Resolved]
  - Foreign body in throat [Recovered/Resolved]

NARRATIVE: CASE EVENT DATE: 20230921
